FAERS Safety Report 5347829-3 (Version None)
Quarter: 2007Q2

REPORT INFORMATION
  Report Type: 
  Country: None (occurrence: None)
  Receive Date: 20070515
  Receipt Date: 20060717
  Transmission Date: 20071010
  Serious: Yes (Hospitalization)
  Sender: FDA-Public Use
  Company Number: US200607005443

PATIENT
  Age: 76 Year
  Sex: Male
  Weight: 89.3 kg

DRUGS (17)
  1. KEFLEX (CEPHALEXIN MONOHYDRATE UNKNOWN FORMULATION) [Suspect]
     Indication: CELLULITIS
  2. ALIMTA [Concomitant]
  3. GEMZAR [Concomitant]
  4. VITAMIN B12 [Concomitant]
  5. FOLIC ACID [Concomitant]
  6. DEXAMETHASONE TAB [Concomitant]
  7. ARANESP [Concomitant]
  8. PROCARDIA [Concomitant]
  9. LOTENSIN [Concomitant]
  10. PLAVIX [Concomitant]
  11. LOVASTATIN [Concomitant]
  12. HYDROCHLOROTHIAZIDE [Concomitant]
  13. TOPROL-XL [Concomitant]
  14. WARFARIN SODIUM [Concomitant]
  15. LASIX (FUROSEMIDE, FUROSEMIDE SODIUM) [Concomitant]
  16. LANTUS [Concomitant]
  17. ASPIRIN [Concomitant]

REACTIONS (1)
  - HYPERSENSITIVITY [None]
